FAERS Safety Report 19090764 (Version 4)
Quarter: 2021Q2

REPORT INFORMATION
  Report Type: Spontaneous
  Country: JP (occurrence: JP)
  Receive Date: 20210405
  Receipt Date: 20210505
  Transmission Date: 20210717
  Serious: Yes (Hospitalization, Other)
  Sender: FDA-Public Use
  Company Number: JP-AMGEN-JPNSP2019086951

PATIENT
  Age: 66 Year
  Sex: Female
  Weight: 52.9 kg

DRUGS (25)
  1. DARBEPOETIN ALFA BIOSIMILAR 1 [Concomitant]
     Dosage: 5 MICROGRAM, QWK
     Route: 065
     Dates: start: 20190930, end: 20191028
  2. PARSABIV [Suspect]
     Active Substance: ETELCALCETIDE HYDROCHLORIDE
     Dosage: 2.5 MILLIGRAM, 3 TIMES/WK
     Route: 010
     Dates: start: 20181219, end: 20190206
  3. PARSABIV [Suspect]
     Active Substance: ETELCALCETIDE HYDROCHLORIDE
     Dosage: 2.5 MILLIGRAM, 2 TIMES/WK
     Route: 010
     Dates: start: 20190913, end: 20210311
  4. PARSABIV [Suspect]
     Active Substance: ETELCALCETIDE HYDROCHLORIDE
     Dosage: 2.5 MILLIGRAM, QWK
     Route: 041
     Dates: start: 20210329
  5. NESP [Concomitant]
     Active Substance: DARBEPOETIN ALFA
     Dosage: 5 MICROGRAM, QWK
     Route: 065
     Dates: start: 20190304, end: 20190422
  6. P?TOL [SUCROFERRIC OXYHYDROXIDE] [Concomitant]
     Active Substance: SUCROFERRIC OXYHYDROXIDE
     Dosage: 750 MILLIGRAM, QD
     Route: 065
  7. DARBEPOETIN ALFA BIOSIMILAR 1 [Concomitant]
     Dosage: 10 MICROGRAM, QWK
     Route: 065
     Dates: start: 20191104, end: 20200427
  8. OXAROL [Concomitant]
     Active Substance: MAXACALCITOL
     Dosage: 2.5 MICROGRAM, 2 TIMES/WK
     Route: 065
     Dates: end: 20181210
  9. OXAROL [Concomitant]
     Active Substance: MAXACALCITOL
     Dosage: 2.5 MICROGRAM, 3 TIMES/WK
     Route: 065
     Dates: start: 20181214, end: 20190107
  10. OXAROL [Concomitant]
     Active Substance: MAXACALCITOL
     Dosage: 2.5 MICROGRAM, 3 TIMES/WK
     Route: 065
     Dates: start: 20200506, end: 20210121
  11. DARBEPOETIN ALFA BIOSIMILAR 1 [Concomitant]
     Dosage: 10 MICROGRAM, QWK
     Route: 065
     Dates: start: 20190902, end: 20190923
  12. DARBEPOETIN ALFA BIOSIMILAR 1 [Concomitant]
     Dosage: 15 MICROGRAM, QWK
     Route: 065
     Dates: start: 20201019, end: 20210118
  13. OXAROL [Concomitant]
     Active Substance: MAXACALCITOL
     Dosage: 5 MICROGRAM, QWK
     Route: 065
     Dates: start: 20190109, end: 20200429
  14. DARBEPOETIN ALFA BIOSIMILAR 1 [Concomitant]
     Dosage: 15 MICROGRAM, QWK
     Route: 065
     Dates: start: 20190819, end: 20190826
  15. DARBEPOETIN ALFA BIOSIMILAR 1 [Concomitant]
     Dosage: 10 MICROGRAM, QWK
     Route: 065
     Dates: start: 20200601, end: 20201012
  16. NESP [Concomitant]
     Active Substance: DARBEPOETIN ALFA
     Dosage: 15 MICROGRAM, QWK
     Route: 065
     Dates: end: 20190114
  17. NESP [Concomitant]
     Active Substance: DARBEPOETIN ALFA
     Dosage: 10 MICROGRAM, QWK
     Route: 065
     Dates: start: 20190429, end: 20190527
  18. DARBEPOETIN ALFA BIOSIMILAR 1 [Concomitant]
     Dosage: 10 MICROGRAM, QWK
     Route: 065
     Dates: start: 20210317
  19. ALFAROL [Concomitant]
     Active Substance: ALFACALCIDOL
     Dosage: 0.25 MICROGRAM, QD
     Route: 065
     Dates: start: 20210312
  20. PARSABIV [Suspect]
     Active Substance: ETELCALCETIDE HYDROCHLORIDE
     Indication: HYPERPARATHYROIDISM SECONDARY
     Dosage: 5 MILLIGRAM, 3 TIMES/WK
     Route: 010
     Dates: start: 20181210, end: 20181217
  21. NESP [Concomitant]
     Active Substance: DARBEPOETIN ALFA
     Dosage: 15 MICROGRAM, QWK
     Route: 065
     Dates: start: 20190603, end: 20190812
  22. PARSABIV [Suspect]
     Active Substance: ETELCALCETIDE HYDROCHLORIDE
     Dosage: 2.5 MILLIGRAM, 2 TIMES/WK
     Route: 010
     Dates: start: 20190211, end: 20190909
  23. NESP [Concomitant]
     Active Substance: DARBEPOETIN ALFA
     Dosage: 10 MICROGRAM, QWK
     Route: 065
     Dates: start: 20190121, end: 20190225
  24. OXAROL [Concomitant]
     Active Substance: MAXACALCITOL
     Dosage: 2.5 MICROGRAM, 2 TIMES/WK
     Route: 065
     Dates: start: 20190511, end: 20200504
  25. DARBEPOETIN ALFA BIOSIMILAR 1 [Concomitant]
     Dosage: 5 MICROGRAM, QWK
     Route: 065
     Dates: start: 20200504, end: 20200525

REACTIONS (7)
  - Fractured sacrum [Recovered/Resolved]
  - Pelvic fracture [Recovered/Resolved]
  - Upper respiratory tract inflammation [Recovered/Resolved]
  - Upper respiratory tract inflammation [Recovered/Resolved]
  - Blood parathyroid hormone decreased [Unknown]
  - Tinea pedis [Recovering/Resolving]
  - Migraine [Recovered/Resolved]

NARRATIVE: CASE EVENT DATE: 20181210
